FAERS Safety Report 7148829-3 (Version None)
Quarter: 2010Q4

REPORT INFORMATION
  Report Type: 
  Country: None (occurrence: None)
  Receive Date: 20101209
  Receipt Date: 20101202
  Transmission Date: 20110411
  Serious: Yes (Other)
  Sender: FDA-Public Use
  Company Number: PHHY2010US23583

PATIENT
  Sex: Female

DRUGS (8)
  1. EXTAVIA [Suspect]
     Indication: MULTIPLE SCLEROSIS
     Dosage: 0.25 MG, QOD
     Route: 058
     Dates: start: 20100331, end: 20101102
  2. AMBIEN [Concomitant]
     Dosage: 5 MG, QHS/PRN
  3. PREMPRO [Concomitant]
     Dosage: 0.3/ 1.5 MG CREAM QOD
  4. MULTI-VITAMINS [Concomitant]
     Dosage: 1 DF, QD
  5. FISH OIL [Concomitant]
     Dosage: 1 DF, QD
  6. VITAMIN D [Concomitant]
     Dosage: UNK
  7. AMPYRA [Concomitant]
     Dosage: 1 DF, BID
  8. NALTREXONE HYDROCHLORIDE [Concomitant]
     Dosage: UNK

REACTIONS (14)
  - BALANCE DISORDER [None]
  - CEREBROVASCULAR INSUFFICIENCY [None]
  - DRUG INEFFECTIVE [None]
  - FALL [None]
  - FATIGUE [None]
  - HYPOAESTHESIA [None]
  - INJECTION SITE ERYTHEMA [None]
  - INJECTION SITE HAEMATOMA [None]
  - INJECTION SITE NODULE [None]
  - INJECTION SITE PAIN [None]
  - MULTIPLE SCLEROSIS [None]
  - MUSCULAR WEAKNESS [None]
  - POLYURIA [None]
  - SURGERY [None]
